FAERS Safety Report 9410080 (Version 3)
Quarter: 2018Q4

REPORT INFORMATION
  Report Type: Spontaneous
  Country: JP (occurrence: JP)
  Receive Date: 20130719
  Receipt Date: 20181113
  Transmission Date: 20190205
  Serious: Yes (Hospitalization, Other)
  Sender: FDA-Public Use
  Company Number: PHHY2013JP074963

PATIENT
  Age: 7 Year
  Sex: Male

DRUGS (4)
  1. CICLOSPORIN [Suspect]
     Active Substance: CYCLOSPORINE
     Indication: HAEMOPHAGOCYTIC LYMPHOHISTIOCYTOSIS
  2. CICLOSPORIN [Suspect]
     Active Substance: CYCLOSPORINE
     Indication: JUVENILE IDIOPATHIC ARTHRITIS
     Dosage: 1.5 MG/KG, QD
     Route: 042
  3. DEXAMETHASONE. [Suspect]
     Active Substance: DEXAMETHASONE
     Indication: PRODUCT USED FOR UNKNOWN INDICATION
     Dosage: UNK
     Route: 065
  4. METHYLPREDNISOLONE. [Suspect]
     Active Substance: METHYLPREDNISOLONE
     Indication: JUVENILE IDIOPATHIC ARTHRITIS
     Dosage: 30 MG/KG, PER DAY, 3 CONSECUTIVE DAYS IN A WEEK
     Route: 042

REACTIONS (5)
  - Haemophagocytic lymphohistiocytosis [Recovering/Resolving]
  - Juvenile idiopathic arthritis [Recovered/Resolved]
  - Serum ferritin increased [Recovered/Resolved]
  - Drug resistance [Unknown]
  - Pyrexia [Recovered/Resolved]
